FAERS Safety Report 6314764-3 (Version None)
Quarter: 2009Q3

REPORT INFORMATION
  Report Type: 
  Country: None (occurrence: None)
  Receive Date: 20090817
  Receipt Date: 20090707
  Transmission Date: 20100115
  Serious: Yes (Hospitalization, Disabling, Other)
  Sender: FDA-Public Use
  Company Number: UK336047

PATIENT
  Sex: Female
  Weight: 63 kg

DRUGS (7)
  1. KINERET [Suspect]
     Indication: STILL'S DISEASE ADULT ONSET
     Dosage: 100 MG SUBCUTANEOUS, (100 MG SUBCUTANEOUS)
     Route: 058
     Dates: start: 20081126, end: 20081219
  2. KINERET [Suspect]
     Indication: STILL'S DISEASE ADULT ONSET
     Dosage: 100 MG SUBCUTANEOUS, (100 MG SUBCUTANEOUS)
     Route: 058
     Dates: start: 20081231, end: 20090103
  3. PARACETAMOL [Concomitant]
  4. INEXIUM [Concomitant]
  5. HYDROCORTISONE [Concomitant]
  6. ANTIBIOTICS [Concomitant]
  7. OMEPRAZOLE [Concomitant]

REACTIONS (5)
  - DYSPNOEA [None]
  - FUNGAL INFECTION [None]
  - LUNG NEOPLASM [None]
  - PYREXIA [None]
  - TOXIC SKIN ERUPTION [None]
